FAERS Safety Report 10463453 (Version 3)
Quarter: 2014Q4

REPORT INFORMATION
  Report Type: Spontaneous
  Country: US (occurrence: US)
  Receive Date: 20140919
  Receipt Date: 20141106
  Transmission Date: 20150528
  Serious: Yes (Hospitalization, Other)
  Sender: FDA-Public Use
  Company Number: US-AMGEN-USASP2014071292

PATIENT
  Age: 76 Year
  Sex: Female

DRUGS (1)
  1. ENBREL [Suspect]
     Active Substance: ETANERCEPT
     Indication: RHEUMATOID ARTHRITIS
     Dosage: 50 MG, QWK
     Route: 065
     Dates: start: 2012

REACTIONS (10)
  - Hospitalisation [Recovered/Resolved]
  - Impaired healing [Unknown]
  - Pain [Not Recovered/Not Resolved]
  - Arthralgia [Recovered/Resolved]
  - Neutropenia [Unknown]
  - Feeling abnormal [Not Recovered/Not Resolved]
  - Anaemia [Unknown]
  - Wound drainage [Unknown]
  - Hip fracture [Unknown]
  - Joint surgery [Recovered/Resolved]

NARRATIVE: CASE EVENT DATE: 2012
